FAERS Safety Report 7711000-8 (Version None)
Quarter: 2011Q3

REPORT INFORMATION
  Report Type: 
  Country: None (occurrence: None)
  Receive Date: 20110825
  Receipt Date: 20110810
  Transmission Date: 20111222
  Serious: Yes (Death, Hospitalization)
  Sender: FDA-Public Use
  Company Number: US-WATSON-2011-13271

PATIENT
  Age: 50 Year
  Sex: Male

DRUGS (1)
  1. HYDROXOCOBALAMIN (WATSON LABORATORIES) [Suspect]
     Indication: EVIDENCE BASED TREATMENT
     Dosage: 5 G, UNKNOWN
     Route: 042

REACTIONS (1)
  - HYPERTENSION [None]
